FAERS Safety Report 14459353 (Version 1)
Quarter: 2018Q1

REPORT INFORMATION
  Report Type: Other
  Country: US (occurrence: US)
  Receive Date: 20180130
  Receipt Date: 20180130
  Transmission Date: 20180509
  Serious: No
  Sender: FDA-Public Use
  Company Number: US-ACORDA-ACO_137766_2017

PATIENT
  Sex: Female

DRUGS (5)
  1. TYSABRI [Concomitant]
     Active Substance: NATALIZUMAB
     Indication: GAIT DISTURBANCE
     Dosage: UNK
     Route: 065
     Dates: start: 2009
  2. AMPYRA [Suspect]
     Active Substance: DALFAMPRIDINE
     Indication: GAIT DISTURBANCE
     Dosage: 10 MG, BID
     Route: 048
     Dates: start: 2014
  3. BETASERON [Concomitant]
     Active Substance: INTERFERON BETA-1B
     Indication: GAIT DISTURBANCE
     Dosage: UNK
     Route: 065
     Dates: start: 2009
  4. GILENYA [Concomitant]
     Active Substance: FINGOLIMOD HYDROCHLORIDE
     Indication: GAIT DISTURBANCE
     Dosage: UNK
     Route: 065
     Dates: start: 2009, end: 201607
  5. GILENYA [Concomitant]
     Active Substance: FINGOLIMOD HYDROCHLORIDE
     Indication: LOSS OF PERSONAL INDEPENDENCE IN DAILY ACTIVITIES

REACTIONS (5)
  - Loss of personal independence in daily activities [Not Recovered/Not Resolved]
  - Ear disorder [Unknown]
  - Condition aggravated [Not Recovered/Not Resolved]
  - Gait disturbance [Not Recovered/Not Resolved]
  - Asthenia [Not Recovered/Not Resolved]
